FAERS Safety Report 6572345-0 (Version None)
Quarter: 2010Q1

REPORT INFORMATION
  Report Type: 
  Country: None (occurrence: None)
  Receive Date: 20100205
  Receipt Date: 20100203
  Transmission Date: 20100710
  Serious: Yes (Death)
  Sender: FDA-Public Use
  Company Number: JP-ELI_LILLY_AND_COMPANY-JP201002000996

PATIENT
  Age: 80 Year
  Sex: Female

DRUGS (2)
  1. GEMZAR [Suspect]
     Indication: OVARIAN NEOPLASM
     Dosage: 1400 MG, OTHER
     Route: 042
     Dates: start: 20091117, end: 20091117
  2. GEMZAR [Suspect]
     Dosage: 900 MG, OTHER
     Route: 042
     Dates: start: 20090101

REACTIONS (2)
  - INTERSTITIAL LUNG DISEASE [None]
  - OFF LABEL USE [None]
